FAERS Safety Report 11688174 (Version 3)
Quarter: 2016Q2

REPORT INFORMATION
  Report Type: Spontaneous
  Country: US (occurrence: US)
  Receive Date: 20151030
  Receipt Date: 20160615
  Transmission Date: 20160815
  Serious: Yes (Hospitalization, Other)
  Sender: FDA-Public Use
  Company Number: US-ASTRAZENECA-2015SF03285

PATIENT
  Age: 62 Year
  Sex: Female
  Weight: 93.9 kg

DRUGS (13)
  1. METOPROLOL. [Suspect]
     Active Substance: METOPROLOL
     Indication: HEART RATE ABNORMAL
     Route: 048
  2. BYETTA [Suspect]
     Active Substance: EXENATIDE
     Indication: TYPE 2 DIABETES MELLITUS
     Route: 058
     Dates: start: 2007, end: 2007
  3. BYETTA [Suspect]
     Active Substance: EXENATIDE
     Indication: TYPE 2 DIABETES MELLITUS
     Route: 065
     Dates: start: 20100101, end: 20110101
  4. BYETTA [Suspect]
     Active Substance: EXENATIDE
     Indication: TYPE 2 DIABETES MELLITUS
     Route: 058
     Dates: start: 20151022
  5. BYDUREON [Suspect]
     Active Substance: EXENATIDE
     Indication: TYPE 2 DIABETES MELLITUS
     Route: 058
     Dates: start: 201508, end: 201510
  6. METOPROLOL. [Suspect]
     Active Substance: METOPROLOL
     Indication: HEART RATE IRREGULAR
     Route: 048
  7. OMEPRAZOLE. [Suspect]
     Active Substance: OMEPRAZOLE
     Indication: GASTROOESOPHAGEAL REFLUX DISEASE
     Route: 048
  8. METFORMIN [Concomitant]
     Active Substance: METFORMIN HYDROCHLORIDE
     Indication: DIABETES MELLITUS
  9. HYDROCHLOROTHIAZIDE. [Concomitant]
     Active Substance: HYDROCHLOROTHIAZIDE
     Indication: PERIPHERAL SWELLING
  10. BYETTA [Suspect]
     Active Substance: EXENATIDE
     Indication: TYPE 2 DIABETES MELLITUS
     Route: 058
     Dates: start: 2007, end: 2008
  11. DIOVAN [Concomitant]
     Active Substance: VALSARTAN
     Indication: HYPERTENSION
     Dosage: GENERIC
  12. NORTRIPTYLINE [Concomitant]
     Active Substance: NORTRIPTYLINE
     Indication: MOOD SWINGS
  13. CHLORCON [Concomitant]
     Indication: BLOOD POTASSIUM ABNORMAL

REACTIONS (14)
  - Amnesia [Not Recovered/Not Resolved]
  - Injection site urticaria [Unknown]
  - Ankle fracture [Unknown]
  - Injection site mass [Unknown]
  - Impaired healing [Unknown]
  - Weight increased [Unknown]
  - Injection site pain [Unknown]
  - Decreased appetite [Unknown]
  - Gastrooesophageal reflux disease [Unknown]
  - Weight decreased [Unknown]
  - Injection site bruising [Unknown]
  - Abdominal distension [Unknown]
  - Injection site haemorrhage [Unknown]
  - Fall [Unknown]

NARRATIVE: CASE EVENT DATE: 201410
